FAERS Safety Report 9382465 (Version 2)
Quarter: 2013Q3

REPORT INFORMATION
  Report Type: Report from Study
  Country: BE (occurrence: BE)
  Receive Date: 20130703
  Receipt Date: 20130821
  Transmission Date: 20140515
  Serious: Yes (Death)
  Sender: FDA-Public Use
  Company Number: PHHY2013BE069835

PATIENT
  Age: 76 Year
  Sex: Male

DRUGS (1)
  1. ACLASTA [Suspect]
     Dosage: 5 MG, YEARLY
     Route: 042
     Dates: start: 20120717

REACTIONS (1)
  - Cerebrovascular accident [Fatal]
